FAERS Safety Report 13645094 (Version 1)
Quarter: 2017Q2

REPORT INFORMATION
  Report Type: Spontaneous
  Country: US (occurrence: US)
  Receive Date: 20170612
  Receipt Date: 20170612
  Transmission Date: 20170830
  Serious: No
  Sender: FDA-Public Use
  Company Number: US-ROCHE-1474875

PATIENT
  Sex: Female

DRUGS (1)
  1. XELODA [Suspect]
     Active Substance: CAPECITABINE
     Indication: PRODUCT USED FOR UNKNOWN INDICATION
     Dosage: 14 DAYS ON AND 14 DAYS OFF
     Route: 048
     Dates: start: 20140919

REACTIONS (4)
  - Alopecia [Unknown]
  - Dysgeusia [Unknown]
  - Hypoaesthesia [Unknown]
  - Skin exfoliation [Unknown]
